FAERS Safety Report 26002332 (Version 1)
Quarter: 2025Q4

REPORT INFORMATION
  Report Type: Spontaneous
  Country: US (occurrence: US)
  Receive Date: 20251105
  Receipt Date: 20251105
  Transmission Date: 20260117
  Serious: Yes (Other)
  Sender: ABBVIE
  Company Number: US-ABBVIE-6534226

PATIENT
  Age: 64 Year

DRUGS (7)
  1. VENETOCLAX [Suspect]
     Active Substance: VENETOCLAX
     Indication: T-cell prolymphocytic leukaemia
     Dosage: 600 TO 800MG
     Route: 048
  2. VENETOCLAX [Suspect]
     Active Substance: VENETOCLAX
     Indication: T-cell prolymphocytic leukaemia
     Route: 048
  3. CLADRIBINE [Suspect]
     Active Substance: CLADRIBINE
     Indication: T-cell prolymphocytic leukaemia
     Dosage: 3.75 TO 5.6 MG/M2, ON DAYS 1 TO 5
     Route: 042
  4. CLADRIBINE [Suspect]
     Active Substance: CLADRIBINE
     Indication: T-cell prolymphocytic leukaemia
     Dosage: FOR 5 DAYS
     Route: 042
  5. ALEMTUZUMAB [Suspect]
     Active Substance: ALEMTUZUMAB
     Indication: T-cell prolymphocytic leukaemia
     Dosage: TIME INTERVAL: 0.33333333 WEEKS
     Route: 042
  6. PENTOSTATIN [Suspect]
     Active Substance: PENTOSTATIN
     Indication: T-cell prolymphocytic leukaemia
     Route: 065
  7. LETERMOVIR [Suspect]
     Active Substance: LETERMOVIR
     Indication: T-cell prolymphocytic leukaemia
     Route: 065

REACTIONS (3)
  - Myelosuppression [Unknown]
  - Therapeutic product effect incomplete [Unknown]
  - Off label use [Unknown]
